FAERS Safety Report 8608317-1 (Version None)
Quarter: 2012Q3

REPORT INFORMATION
  Report Type: 
  Country: None (occurrence: None)
  Receive Date: 20120821
  Receipt Date: 20120813
  Transmission Date: 20120928
  Serious: Yes (Other)
  Sender: FDA-Public Use
  Company Number: US-JNJFOC-20111207827

PATIENT
  Sex: Female

DRUGS (15)
  1. COMPAZINE [Suspect]
     Indication: NAUSEA
     Route: 065
  2. AMBIEN [Suspect]
     Indication: PRODUCT USED FOR UNKNOWN INDICATION
     Route: 065
  3. IBUPROFEN [Suspect]
     Indication: HEADACHE
     Route: 065
     Dates: start: 20080609
  4. TYLENOL W/ CODEINE [Suspect]
     Indication: HEADACHE
     Route: 048
  5. COMPAZINE [Suspect]
     Indication: VOMITING
     Route: 065
  6. LYRICA [Suspect]
     Indication: PRODUCT USED FOR UNKNOWN INDICATION
     Route: 065
  7. ZOFRAN [Suspect]
     Indication: PRODUCT USED FOR UNKNOWN INDICATION
     Route: 065
  8. MULTI-VITAMINS [Concomitant]
     Indication: VITAMIN SUPPLEMENTATION
     Route: 065
  9. BUTALBITAL ACETAMINOPHEN AND CAFFEINE [Suspect]
     Indication: PRODUCT USED FOR UNKNOWN INDICATION
     Route: 065
  10. TESSALON [Suspect]
     Indication: COUGH
     Route: 048
  11. TOPAMAX [Suspect]
     Indication: MIGRAINE
     Route: 048
     Dates: start: 20060101
  12. SYMBICORT [Suspect]
     Indication: ASTHMA
     Dosage: 2 PUFFS TWICE DAILY.
     Route: 065
  13. EXCEDRIN (MIGRAINE) [Suspect]
     Indication: HEADACHE
     Route: 065
  14. REPLIVA [Concomitant]
     Indication: PROPHYLAXIS
     Route: 065
  15. ALBUTEROL [Suspect]
     Indication: ASTHMA
     Route: 065

REACTIONS (4)
  - MATERNAL EXPOSURE DURING PREGNANCY [None]
  - DEPRESSION [None]
  - WEIGHT DECREASED [None]
  - STRESS [None]
